FAERS Safety Report 24201406 (Version 2)
Quarter: 2024Q3

REPORT INFORMATION
  Report Type: Spontaneous
  Country: US (occurrence: US)
  Receive Date: 20240812
  Receipt Date: 20240815
  Transmission Date: 20241017
  Serious: No
  Sender: AMGEN
  Company Number: US-AMGEN-USASP2024159418

PATIENT
  Sex: Female

DRUGS (1)
  1. EVENITY [Suspect]
     Active Substance: ROMOSOZUMAB-AQQG
     Indication: Product used for unknown indication
     Dosage: 105 MILLIGRAM
     Route: 058

REACTIONS (4)
  - Musculoskeletal stiffness [Unknown]
  - Influenza like illness [Unknown]
  - Arthralgia [Unknown]
  - Dysphagia [Unknown]

NARRATIVE: CASE EVENT DATE: 20240809
